FAERS Safety Report 6177740-X (Version None)
Quarter: 2009Q2

REPORT INFORMATION
  Report Type: 
  Country: None (occurrence: None)
  Receive Date: 20090504
  Receipt Date: 20090107
  Transmission Date: 20091009
  Serious: No
  Sender: FDA-Public Use
  Company Number: US-ALEXION-A200800415

PATIENT
  Sex: Female

DRUGS (16)
  1. SOLIRIS [Suspect]
     Indication: PAROXYSMAL NOCTURNAL HAEMOGLOBINURIA
     Dosage: 600 MG, QW
     Route: 042
     Dates: start: 20070524, end: 20070601
  2. SOLIRIS [Suspect]
     Dosage: 900 MG, Q2W
     Route: 042
     Dates: start: 20070620
  3. SENNA-S                            /01035001/ [Concomitant]
     Indication: CONSTIPATION
     Dosage: UNK
     Route: 048
  4. CALCIUM [Concomitant]
     Indication: BONE DISORDER
     Dosage: UNK
     Route: 048
  5. MEGAVITAMIN [Concomitant]
     Indication: ROUTINE HEALTH MAINTENANCE
     Dosage: UNK
     Route: 048
  6. PERCOCET [Concomitant]
     Indication: PAIN
     Dosage: 5/325 MG, PRN
     Route: 048
  7. TRAZODONE HCL [Concomitant]
     Indication: SLEEP DISORDER
     Dosage: 50 MG, PRN
     Route: 048
  8. AMITRIPTLINE HYDROCHLORIDE TAB [Concomitant]
     Indication: RELAXATION THERAPY
     Dosage: 25 MG, PRN
     Route: 048
  9. PROCRIT                            /00909301/ [Concomitant]
     Dosage: UNK
     Route: 048
  10. FOLIC ACID [Concomitant]
     Dosage: UNK
     Route: 048
  11. BUMEX [Concomitant]
     Dosage: UNK
     Route: 048
  12. CELEXA [Concomitant]
     Dosage: UNK
     Route: 048
  13. POTASSIUM CHLORIDE [Concomitant]
     Dosage: UNK
     Route: 048
  14. WARFARIN [Concomitant]
     Dosage: UNK
     Route: 048
  15. METHADONE [Concomitant]
     Indication: PAIN
     Dosage: UNK
     Route: 048
  16. FOSAMAX [Concomitant]
     Dosage: UNK
     Route: 048

REACTIONS (1)
  - NASOPHARYNGITIS [None]
